FAERS Safety Report 21187675 (Version 1)
Quarter: 2022Q3

REPORT INFORMATION
  Report Type: Report from Study
  Country: AU (occurrence: AU)
  Receive Date: 20220808
  Receipt Date: 20220808
  Transmission Date: 20221027
  Serious: Yes (Death)
  Sender: FDA-Public Use
  Company Number: AU-BEH-2022148469

PATIENT
  Age: 80 Year
  Sex: Male
  Weight: 79 kg

DRUGS (3)
  1. HIZENTRA [Suspect]
     Active Substance: HUMAN IMMUNOGLOBULIN G
     Indication: Secondary immunodeficiency
     Dosage: 7 GRAM, QW
     Route: 058
  2. IBRUTINIB [Concomitant]
     Active Substance: IBRUTINIB
     Dosage: 140 MILLIGRAM
     Route: 065
  3. VENTOLIN [Concomitant]
     Active Substance: ALBUTEROL SULFATE
     Route: 065

REACTIONS (1)
  - Death [Fatal]

NARRATIVE: CASE EVENT DATE: 20220501
